FAERS Safety Report 7460884-X (Version None)
Quarter: 2011Q2

REPORT INFORMATION
  Report Type: 
  Country: None (occurrence: None)
  Receive Date: 20110505
  Receipt Date: 20110502
  Transmission Date: 20111010
  Serious: Yes (Hospitalization, Disabling, Other)
  Sender: FDA-Public Use
  Company Number: US-PFIZER INC-2011029039

PATIENT
  Sex: Male

DRUGS (1)
  1. CHANTIX [Suspect]
     Dosage: 0.5 - 1 MG
     Dates: start: 20080901, end: 20081201

REACTIONS (12)
  - PARANOIA [None]
  - SUICIDE ATTEMPT [None]
  - ANXIETY [None]
  - ABNORMAL BEHAVIOUR [None]
  - VISION BLURRED [None]
  - DEPRESSION [None]
  - HALLUCINATION, AUDITORY [None]
  - MENTAL DISORDER [None]
  - AGGRESSION [None]
  - DELUSION [None]
  - EMOTIONAL DISTRESS [None]
  - LOOSE TOOTH [None]
